FAERS Safety Report 8269167-1 (Version None)
Quarter: 2012Q2

REPORT INFORMATION
  Report Type: 
  Country: None (occurrence: None)
  Receive Date: 20120409
  Receipt Date: 20120405
  Transmission Date: 20120825
  Serious: Yes (Hospitalization)
  Sender: FDA-Public Use
  Company Number: US-MEDIMMUNE-MEDI-0015380

PATIENT
  Sex: Male

DRUGS (2)
  1. SYNAGIS [Suspect]
     Dates: start: 20111101, end: 20111101
  2. SYNAGIS [Suspect]
     Dates: start: 20120301, end: 20120301

REACTIONS (6)
  - OEDEMA PERIPHERAL [None]
  - DYSPHAGIA [None]
  - DYSPNOEA [None]
  - JOINT SWELLING [None]
  - RASH ERYTHEMATOUS [None]
  - BLOOD PRESSURE FLUCTUATION [None]
